FAERS Safety Report 21336248 (Version 1)
Quarter: 2022Q3

REPORT INFORMATION
  Report Type: Spontaneous
  Country: US (occurrence: None)
  Receive Date: 20220914
  Receipt Date: 20220914
  Transmission Date: 20221027
  Serious: Yes (Hospitalization)
  Sender: FDA-Public Use
  Company Number: None

PATIENT
  Sex: Male

DRUGS (21)
  1. PULMOZYME [Suspect]
     Active Substance: DORNASE ALFA
     Indication: Infective pulmonary exacerbation of cystic fibrosis
     Dosage: OTHER QUANTITY : 2.5MG/2.5M;?FREQUENCY : DAILY;?
     Route: 055
  2. AGTIGALL CAP [Concomitant]
  3. BACTRIM TAB [Concomitant]
  4. CALCIUM TAB [Concomitant]
  5. CELLCEPT [Concomitant]
     Active Substance: MYCOPHENOLATE MOFETIL
  6. COZAAR TAB [Concomitant]
  7. FOLIC ACID TAB [Concomitant]
  8. FOSAMAX TAB [Concomitant]
  9. GARLIC TAB [Concomitant]
  10. LEVAQUIN TAB [Concomitant]
  11. NASAL SPR [Concomitant]
  12. NEO-SYNEPHRI SPR [Concomitant]
  13. NOXAFIL SUS [Concomitant]
  14. PENICILLIN V POTASSIUM [Concomitant]
     Active Substance: PENICILLIN V POTASSIUM
  15. PREDNISONE [Concomitant]
     Active Substance: PREDNISONE
  16. PROGRAF [Concomitant]
     Active Substance: TACROLIMUS
  17. RANITIDINE CAP [Concomitant]
  18. RASPBERRY SYP [Concomitant]
  19. TOBI NEB [Concomitant]
  20. TOBRAMYCIN INJ [Concomitant]
  21. VITAMIN E CAP [Concomitant]

REACTIONS (1)
  - Productive cough [None]
